FAERS Safety Report 8046241-6 (Version None)
Quarter: 2012Q1

REPORT INFORMATION
  Report Type: 
  Country: None (occurrence: None)
  Receive Date: 20120113
  Receipt Date: 20120110
  Transmission Date: 20120608
  Serious: Yes (Other)
  Sender: FDA-Public Use
  Company Number: DK-PFIZER INC-2012008877

PATIENT
  Age: 41 Year
  Sex: Male

DRUGS (1)
  1. VARENICLINE TARTRATE [Suspect]
     Dosage: UNK

REACTIONS (5)
  - DEPRESSION [None]
  - EXERCISE TOLERANCE DECREASED [None]
  - VIOLENCE-RELATED SYMPTOM [None]
  - CARDIAC DISORDER [None]
  - AGGRESSION [None]
